FAERS Safety Report 10199572 (Version 1)
Quarter: 2014Q2

REPORT INFORMATION
  Report Type: Spontaneous
  Country: US (occurrence: None)
  Receive Date: 20140523
  Receipt Date: 20140523
  Transmission Date: 20141212
  Serious: Yes (Other)
  Sender: FDA-Public Use
  Company Number: None

PATIENT
  Age: 57 Year
  Sex: Male
  Weight: 124.74 kg

DRUGS (2)
  1. DOXYCYCLINE [Suspect]
     Indication: SINUSITIS
     Dosage: 1 PILL
     Route: 048
  2. DOXYCYCLINE [Suspect]
     Indication: STAPHYLOCOCCUS TEST POSITIVE
     Dosage: 1 PILL
     Route: 048

REACTIONS (8)
  - Skin burning sensation [None]
  - Gait disturbance [None]
  - Arthralgia [None]
  - Meniscus injury [None]
  - Arthropathy [None]
  - Chondropathy [None]
  - Inflammation [None]
  - Drug interaction [None]
